FAERS Safety Report 22355943 (Version 2)
Quarter: 2023Q2

REPORT INFORMATION
  Report Type: Report from Study
  Country: US (occurrence: US)
  Receive Date: 20230523
  Receipt Date: 20230524
  Transmission Date: 20230721
  Serious: No
  Sender: FDA-Public Use
  Company Number: US-002147023-NVSC2023US114462

PATIENT
  Sex: Male

DRUGS (1)
  1. ENTRESTO [Suspect]
     Active Substance: SACUBITRIL\VALSARTAN
     Indication: Product used for unknown indication
     Dosage: UNK UNK, BID (1/2 TABLET IN THE MORNING AND 1 TABLET IN THE EVENING)
     Route: 048
     Dates: start: 201912

REACTIONS (3)
  - Vision blurred [Unknown]
  - Hypotension [Unknown]
  - Wrong technique in product usage process [Unknown]
